FAERS Safety Report 21851962 (Version 2)
Quarter: 2023Q1

REPORT INFORMATION
  Report Type: Report from Study
  Country: NL (occurrence: NL)
  Receive Date: 20230112
  Receipt Date: 20230130
  Transmission Date: 20230417
  Serious: No
  Sender: FDA-Public Use
  Company Number: NL-TEVA-2023-NL-2844570

PATIENT
  Age: 29 Year
  Sex: Female

DRUGS (1)
  1. COPAXONE [Suspect]
     Active Substance: GLATIRAMER ACETATE
     Indication: Relapsing multiple sclerosis
     Route: 058

REACTIONS (7)
  - Immediate post-injection reaction [Recovered/Resolved]
  - Obstruction [Recovered/Resolved]
  - Dyslalia [Recovered/Resolved]
  - Panic reaction [Recovered/Resolved]
  - Palpitations [Recovered/Resolved]
  - Chest discomfort [Recovered/Resolved]
  - Stress [Recovered/Resolved]

NARRATIVE: CASE EVENT DATE: 20230104
